FAERS Safety Report 24608185 (Version 1)
Quarter: 2024Q4

REPORT INFORMATION
  Report Type: Report from Study
  Country: US (occurrence: US)
  Receive Date: 20241112
  Receipt Date: 20241112
  Transmission Date: 20250115
  Serious: Yes (Hospitalization, Other)
  Sender: ABBVIE
  Company Number: US-ABBVIE-5997639

PATIENT
  Age: 72 Year
  Sex: Female

DRUGS (2)
  1. DUOPA [Suspect]
     Active Substance: CARBIDOPA\LEVODOPA
     Indication: Parkinson^s disease
     Route: 050
     Dates: start: 20210915
  2. DUOPA [Suspect]
     Active Substance: CARBIDOPA\LEVODOPA

REACTIONS (6)
  - Cerebral haemorrhage [Recovering/Resolving]
  - Fall [Recovering/Resolving]
  - Therapeutic product effect decreased [Recovering/Resolving]
  - On and off phenomenon [Unknown]
  - Deep brain stimulation [Unknown]
  - Choking [Unknown]

NARRATIVE: CASE EVENT DATE: 20230101
